FAERS Safety Report 4525425-5 (Version None)
Quarter: 2004Q4

REPORT INFORMATION
  Report Type: 
  Country: None (occurrence: None)
  Receive Date: 20041213
  Receipt Date: 20041201
  Transmission Date: 20050328
  Serious: Yes (Hospitalization)
  Sender: FDA-Public Use
  Company Number: FR-GLAXOSMITHKLINE-B0359188A

PATIENT
  Age: 84 Year
  Sex: Female

DRUGS (5)
  1. AUGMENTIN '125' [Suspect]
     Indication: LUNG INFECTION
     Dosage: 1G THREE TIMES PER DAY
     Route: 042
     Dates: start: 20041107, end: 20041109
  2. GENTAMYCINE [Concomitant]
     Indication: ENTEROCOCCAL INFECTION
     Dosage: 80MG TWICE PER DAY
     Route: 042
     Dates: start: 20041110
  3. OFLOCET [Concomitant]
     Indication: LUNG INFECTION
     Dosage: 200MG TWICE PER DAY
     Route: 042
     Dates: start: 20041109
  4. VANCOMYCIN [Concomitant]
     Indication: ENTEROCOCCAL INFECTION
     Dosage: 1G TWICE PER DAY
     Route: 042
     Dates: start: 20041110, end: 20041111
  5. MODOPAR [Concomitant]
     Dosage: 187.5MG EIGHT TIMES PER DAY
     Route: 048
     Dates: start: 20010615

REACTIONS (4)
  - DERMATITIS BULLOUS [None]
  - RASH [None]
  - RASH MACULAR [None]
  - TOXIC EPIDERMAL NECROLYSIS [None]
